FAERS Safety Report 14347376 (Version 1)
Quarter: 2018Q1

REPORT INFORMATION
  Report Type: Spontaneous
  Country: US (occurrence: US)
  Receive Date: 20180102
  Receipt Date: 20180102
  Transmission Date: 20180509
  Serious: No
  Sender: FDA-Public Use
  Company Number: None

PATIENT
  Age: 78 Year
  Sex: Female
  Weight: 72 kg

DRUGS (10)
  1. RANITIDINE. [Concomitant]
     Active Substance: RANITIDINE
  2. VENLAFAXINE [Concomitant]
     Active Substance: VENLAFAXINE HYDROCHLORIDE
  3. COLACE [Concomitant]
     Active Substance: DOCUSATE SODIUM
  4. BENZONATATE. [Suspect]
     Active Substance: BENZONATATE
     Indication: COUGH
     Route: 048
     Dates: start: 20171224, end: 20171225
  5. GABAPENTIN. [Concomitant]
     Active Substance: GABAPENTIN
  6. ALPRAZOLAM. [Concomitant]
     Active Substance: ALPRAZOLAM
  7. LANTUS [Concomitant]
     Active Substance: INSULIN GLARGINE
  8. QUETIAPINE. [Concomitant]
     Active Substance: QUETIAPINE
  9. PREDNISONE. [Concomitant]
     Active Substance: PREDNISONE
  10. FLUTICASONE. [Concomitant]
     Active Substance: FLUTICASONE

REACTIONS (3)
  - Confusional state [None]
  - Lethargy [None]
  - Cough [None]

NARRATIVE: CASE EVENT DATE: 20171225
